FAERS Safety Report 15108804 (Version 1)
Quarter: 2018Q3

REPORT INFORMATION
  Report Type: Spontaneous
  Country: US (occurrence: US)
  Receive Date: 20180705
  Receipt Date: 20180705
  Transmission Date: 20181010
  Serious: No
  Sender: FDA-Public Use
  Company Number: US-GLENMARK PHARMACEUTICALS-2018GMK034430

PATIENT

DRUGS (1)
  1. NORGESTIMATE AND ETHINYL ESTRADIOL [Suspect]
     Active Substance: ETHINYL ESTRADIOL\NORGESTIMATE
     Indication: ORAL CONTRACEPTION
     Dosage: UNK UNK, OD
     Route: 048
     Dates: start: 20180228

REACTIONS (3)
  - Vaginal haemorrhage [Unknown]
  - Product substitution issue [Unknown]
  - Breast tenderness [Unknown]

NARRATIVE: CASE EVENT DATE: 20180331
